FAERS Safety Report 10255430 (Version 1)
Quarter: 2014Q2

REPORT INFORMATION
  Report Type: Spontaneous
  Country: US (occurrence: US)
  Receive Date: 20140624
  Receipt Date: 20140624
  Transmission Date: 20141212
  Serious: Yes (Hospitalization, Other)
  Sender: FDA-Public Use
  Company Number: US-SA-2014SA081173

PATIENT
  Age: 63 Year
  Sex: Female

DRUGS (10)
  1. LASIX [Suspect]
     Indication: PRODUCT USED FOR UNKNOWN INDICATION
     Route: 065
  2. AMBRISENTAN [Suspect]
     Indication: PULMONARY ARTERIAL HYPERTENSION
     Route: 048
     Dates: start: 20110209
  3. LOSARTAN [Concomitant]
  4. ATORVASTATIN [Concomitant]
  5. SINGULAIR [Concomitant]
  6. BYSTOLIC [Concomitant]
  7. ALBUTEROL [Concomitant]
  8. ADVAIR [Concomitant]
  9. ALISKIREN FUMARATE [Concomitant]
  10. AMLODIPINE [Concomitant]

REACTIONS (3)
  - Cardiac failure congestive [Recovered/Resolved]
  - Cardiac pacemaker insertion [Recovered/Resolved]
  - Unevaluable event [Recovered/Resolved]
